FAERS Safety Report 5972210-3 (Version None)
Quarter: 2008Q4

REPORT INFORMATION
  Report Type: 
  Country: None (occurrence: None)
  Receive Date: 20081201
  Receipt Date: 20071025
  Transmission Date: 20090506
  Serious: No
  Sender: FDA-Public Use
  Company Number: US-TEVA-163768USA

PATIENT
  Sex: Female

DRUGS (6)
  1. SALBUTAMOL SULFATE INHALATION, 0.09 MG [Suspect]
  2. BUDESONIDE [Concomitant]
     Indication: RHINITIS
  3. MONTELUKAST SODIUM [Concomitant]
  4. LORATADINE [Concomitant]
  5. ALBUTEROL SULFATE [Concomitant]
  6. PSEUDOEPHEDRINE HYDROCHLORIDE [Concomitant]

REACTIONS (3)
  - EYE PAIN [None]
  - HEADACHE [None]
  - SINUS HEADACHE [None]
